FAERS Safety Report 8397020-1 (Version None)
Quarter: 2012Q2

REPORT INFORMATION
  Report Type: 
  Country: None (occurrence: None)
  Receive Date: 20120530
  Receipt Date: 20120521
  Transmission Date: 20120825
  Serious: No
  Sender: FDA-Public Use
  Company Number: US-B.I. PHARMACEUTICALS,INC./RIDGEFIELD-2012-BP-11325BP

PATIENT
  Sex: Female

DRUGS (6)
  1. MULTI-VITAMIN [Concomitant]
  2. TOPROL-XL [Concomitant]
  3. PRAVASTATIN [Concomitant]
  4. PREMPRO [Concomitant]
  5. PRADAXA [Suspect]
     Indication: ATRIAL FIBRILLATION
     Dosage: 300 MG
     Route: 048
     Dates: start: 20110501
  6. CYCLOBENZAPRINE [Concomitant]

REACTIONS (2)
  - BLOOD CREATININE INCREASED [None]
  - PAIN IN EXTREMITY [None]
